FAERS Safety Report 10040659 (Version 4)
Quarter: 2014Q2

REPORT INFORMATION
  Report Type: Report from Study
  Country: IT (occurrence: IT)
  Receive Date: 20140327
  Receipt Date: 20140414
  Transmission Date: 20141212
  Serious: Yes (Hospitalization)
  Sender: FDA-Public Use
  Company Number: IT-ROCHE-1348661

PATIENT
  Age: 66 Year
  Sex: Male
  Weight: 88 kg

DRUGS (10)
  1. OBINUTUZUMAB [Suspect]
     Indication: CHRONIC LYMPHOCYTIC LEUKAEMIA
     Dosage: FREQUENCY AS PER PROTOCOL : 1000 MG ON DAYS 1/2 (SPLIT DOSE), 8 AND 15 OF CYCLE 1.?DATE OF LAST DOSE
     Route: 042
     Dates: start: 20140203, end: 20140210
  2. OBINUTUZUMAB [Suspect]
     Route: 065
     Dates: start: 20140303
  3. FLUDARABINE [Suspect]
     Indication: CHRONIC LYMPHOCYTIC LEUKAEMIA
     Route: 042
     Dates: start: 20140203
  4. CYCLOPHOSPHAMIDE [Suspect]
     Indication: CHRONIC LYMPHOCYTIC LEUKAEMIA
     Route: 042
     Dates: start: 20140203
  5. LANOXIN [Concomitant]
     Route: 048
     Dates: start: 2011
  6. LANOXIN [Concomitant]
     Route: 065
     Dates: start: 20110101
  7. COUMADIN [Concomitant]
     Route: 048
     Dates: start: 2011, end: 20140204
  8. BISOPROLOL [Concomitant]
     Route: 048
     Dates: start: 2011
  9. BISOPROLOL [Concomitant]
     Route: 048
     Dates: start: 20110101
  10. ALLOPURINOL [Concomitant]
     Indication: PROPHYLAXIS
     Route: 048
     Dates: start: 20140128

REACTIONS (1)
  - Febrile neutropenia [Recovered/Resolved]
